FAERS Safety Report 4413055-5 (Version None)
Quarter: 2004Q3

REPORT INFORMATION
  Report Type: 
  Country: None (occurrence: None)
  Receive Date: 20040802
  Receipt Date: 20040802
  Transmission Date: 20050211
  Serious: Yes (Other)
  Sender: FDA-Public Use
  Company Number: None

PATIENT
  Sex: Male
  Weight: 90 kg

DRUGS (7)
  1. VALCYTE [Suspect]
     Indication: EXPOSURE TO COMMUNICABLE DISEASE
     Dosage: 450 MG QOD ORAL
     Route: 048
     Dates: start: 20031118, end: 20040720
  2. VALCYTE [Suspect]
     Indication: RENAL TRANSPLANT
     Dosage: 450 MG QOD ORAL
     Route: 048
     Dates: start: 20031118, end: 20040720
  3. CELLCEPT [Concomitant]
  4. BACTRIM [Concomitant]
  5. PROGRAF [Concomitant]
  6. LOPRESSOR [Concomitant]
  7. NORVASC [Concomitant]

REACTIONS (2)
  - NEUTROPHIL COUNT DECREASED [None]
  - WHITE BLOOD CELL COUNT DECREASED [None]
